FAERS Safety Report 24855678 (Version 1)
Quarter: 2025Q1

REPORT INFORMATION
  Report Type: Spontaneous
  Country: MY (occurrence: MY)
  Receive Date: 20250117
  Receipt Date: 20250117
  Transmission Date: 20250408
  Serious: Yes (Other)
  Sender: SANDOZ
  Company Number: MY-SANDOZ-SDZ2025MY002521

PATIENT
  Age: 60 Year
  Sex: Female

DRUGS (1)
  1. AMOXICILLIN\CLAVULANATE POTASSIUM [Suspect]
     Active Substance: AMOXICILLIN\CLAVULANATE POTASSIUM
     Indication: Carbuncle
     Dosage: 625 MG, Q12H
     Route: 048

REACTIONS (3)
  - Swelling face [Recovered/Resolved]
  - Rash pruritic [Recovered/Resolved]
  - Dizziness [Recovered/Resolved]
